FAERS Safety Report 18203099 (Version 1)
Quarter: 2020Q3

REPORT INFORMATION
  Report Type: Spontaneous
  Country: CN (occurrence: CN)
  Receive Date: 20200827
  Receipt Date: 20200827
  Transmission Date: 20201103
  Serious: Yes (Other)
  Sender: FDA-Public Use
  Company Number: CN-BAXTER-2020BAX017716

PATIENT
  Age: 49 Year
  Sex: Female
  Weight: 77 kg

DRUGS (12)
  1. ENDOXAN [Suspect]
     Active Substance: CYCLOPHOSPHAMIDE
     Dosage: 4TH CHEMOTHERAPY, ENDOXAN 1000 MG + NS 50ML
     Route: 042
     Dates: start: 20200716, end: 20200716
  2. 0.9% SODIUM CHLORIDE INJECTION [Suspect]
     Active Substance: SODIUM CHLORIDE
     Indication: MEDICATION DILUTION
     Dosage: ENDOXAN + NS, FIRST 3 CHEMOTHERAPIES
     Route: 042
  3. 0.9% SODIUM CHLORIDE INJECTION [Suspect]
     Active Substance: SODIUM CHLORIDE
     Dosage: FIRST 3 CHEMOTHERAPIES, AIDASHENG + NS
     Route: 041
  4. AIDASHENG [Suspect]
     Active Substance: EPIRUBICIN HYDROCHLORIDE
     Dosage: AIDASHENG 147 MG + NS 100ML, 4TH CHEMOTHERAPY
     Route: 041
     Dates: start: 20200716, end: 20200716
  5. AIDASHENG [Suspect]
     Active Substance: EPIRUBICIN HYDROCHLORIDE
     Dosage: AIDASHENG + NS, DOSE RE?INTRODUCED
     Route: 041
  6. 0.9% SODIUM CHLORIDE INJECTION [Suspect]
     Active Substance: SODIUM CHLORIDE
     Dosage: 4TH CHEMOTHERAPY, ENDOXAN 1000 MG + NS 50ML
     Route: 042
     Dates: start: 20200716, end: 20200716
  7. 0.9% SODIUM CHLORIDE INJECTION [Suspect]
     Active Substance: SODIUM CHLORIDE
     Dosage: ENDOXAN + NS, DOSE RE?INTRODUCED
     Route: 042
  8. ENDOXAN [Suspect]
     Active Substance: CYCLOPHOSPHAMIDE
     Indication: BREAST CANCER FEMALE
     Dosage: FIRST 3 CHEMOTHERAPIES, ENDOXAN + NS
     Route: 042
  9. AIDASHENG [Suspect]
     Active Substance: EPIRUBICIN HYDROCHLORIDE
     Indication: BREAST CANCER FEMALE
     Dosage: FIRST 3 CHEMOTHERAPIES, AIDASHENG + NS
     Route: 041
  10. ENDOXAN [Suspect]
     Active Substance: CYCLOPHOSPHAMIDE
     Dosage: DOSE RE?INTRODUCED, ENDOXAN + NS
     Route: 042
  11. 0.9% SODIUM CHLORIDE INJECTION [Suspect]
     Active Substance: SODIUM CHLORIDE
     Dosage: AIDASHENG) 147 MG + NS 100ML, 4TH CHEMOTHERAPY
     Route: 041
     Dates: start: 20200716, end: 20200716
  12. 0.9% SODIUM CHLORIDE INJECTION [Suspect]
     Active Substance: SODIUM CHLORIDE
     Dosage: AIDASHENG + NS, DOSE RE?INTRODUCED
     Route: 041

REACTIONS (2)
  - Leukopenia [Recovered/Resolved]
  - Agranulocytosis [Recovered/Resolved]

NARRATIVE: CASE EVENT DATE: 20200726
